FAERS Safety Report 16103407 (Version 11)
Quarter: 2020Q1

REPORT INFORMATION
  Report Type: Report from Study
  Country: None (occurrence: US)
  Receive Date: 20190322
  Receipt Date: 20200116
  Transmission Date: 20200409
  Serious: Yes (Hospitalization, Disabling, Other)
  Sender: FDA-Public Use
  Company Number: US-ABBVIE-19K-163-2652086-00

PATIENT
  Sex: Male
  Weight: 73.55 kg

DRUGS (3)
  1. METHOTREXATE. [Suspect]
     Active Substance: METHOTREXATE
     Indication: RHEUMATOID ARTHRITIS
     Route: 065
     Dates: start: 2005, end: 201908
  2. HUMIRA [Suspect]
     Active Substance: ADALIMUMAB
     Indication: RHEUMATOID ARTHRITIS
     Route: 058
     Dates: start: 20050623, end: 201911
  3. PROTONIX [Suspect]
     Active Substance: PANTOPRAZOLE SODIUM
     Indication: PRODUCT USED FOR UNKNOWN INDICATION
     Route: 065

REACTIONS (43)
  - Pleural effusion [Recovered/Resolved]
  - Oxygen saturation decreased [Recovering/Resolving]
  - Mobility decreased [Unknown]
  - Diplopia [Unknown]
  - Inflammation [Unknown]
  - Prostatomegaly [Not Recovered/Not Resolved]
  - Pollakiuria [Not Recovered/Not Resolved]
  - Haemorrhoids [Unknown]
  - Faeces discoloured [Unknown]
  - Arthropathy [Unknown]
  - Pain [Unknown]
  - Productive cough [Not Recovered/Not Resolved]
  - Pulmonary oedema [Recovered/Resolved]
  - Myalgia [Unknown]
  - Muscle spasms [Not Recovered/Not Resolved]
  - Skin disorder [Unknown]
  - Weight increased [Unknown]
  - Ulcer haemorrhage [Unknown]
  - Fatigue [Recovering/Resolving]
  - Weight decreased [Unknown]
  - Feeling abnormal [Unknown]
  - Pain in extremity [Unknown]
  - Rash macular [Unknown]
  - Weight decreased [Recovering/Resolving]
  - Asthenia [Recovering/Resolving]
  - Hernia [Unknown]
  - Pneumothorax [Recovered/Resolved]
  - Oxygen consumption decreased [Unknown]
  - Pruritus [Unknown]
  - Arthralgia [Not Recovered/Not Resolved]
  - Drain placement [Unknown]
  - Pleural effusion [Recovering/Resolving]
  - Extraocular muscle paresis [Unknown]
  - Fatigue [Unknown]
  - Muscle spasms [Unknown]
  - Pneumonitis [Not Recovered/Not Resolved]
  - Pneumonia [Recovered/Resolved]
  - Skin cancer [Unknown]
  - Cataract [Unknown]
  - Temperature intolerance [Unknown]
  - Musculoskeletal disorder [Unknown]
  - Productive cough [Recovering/Resolving]
  - Musculoskeletal stiffness [Unknown]

NARRATIVE: CASE EVENT DATE: 2018
